FAERS Safety Report 9493844 (Version 3)
Quarter: 2013Q3

REPORT INFORMATION
  Report Type: Report from Study
  Country: ES (occurrence: ES)
  Receive Date: 20130902
  Receipt Date: 20130911
  Transmission Date: 20140515
  Serious: Yes (Death)
  Sender: FDA-Public Use
  Company Number: PHHY2013ES095000

PATIENT
  Sex: Male

DRUGS (1)
  1. GILENYA [Suspect]
     Indication: MULTIPLE SCLEROSIS
     Route: 048
     Dates: start: 20120626, end: 201210

REACTIONS (4)
  - Sepsis [Fatal]
  - Urinary tract infection [Fatal]
  - Infection [Fatal]
  - Drug ineffective [Unknown]
